FAERS Safety Report 6075752-8 (Version None)
Quarter: 2009Q1

REPORT INFORMATION
  Report Type: 
  Country: None (occurrence: None)
  Receive Date: 20090212
  Receipt Date: 20090203
  Transmission Date: 20090719
  Serious: Yes (Hospitalization)
  Sender: FDA-Public Use
  Company Number: FR-AVENTIS-200910397FR

PATIENT
  Age: 81 Year
  Sex: Female

DRUGS (8)
  1. DAONIL [Suspect]
     Indication: TYPE 2 DIABETES MELLITUS
     Route: 048
     Dates: end: 20090111
  2. LOVENOX [Suspect]
     Route: 058
  3. CORDARONE [Concomitant]
     Route: 048
  4. IRBESARTAN [Concomitant]
     Route: 048
  5. DRIPTANE [Concomitant]
     Indication: ENURESIS
     Route: 048
  6. RISPERDAL [Concomitant]
     Route: 048
  7. HYPERIUM                           /00939801/ [Concomitant]
     Route: 048
  8. OMEPRAZOLE [Concomitant]
     Indication: DRUG USE FOR UNKNOWN INDICATION
     Route: 048

REACTIONS (1)
  - HYPOGLYCAEMIC COMA [None]
